FAERS Safety Report 5206917-2 (Version None)
Quarter: 2007Q1

REPORT INFORMATION
  Report Type: 
  Country: None (occurrence: None)
  Receive Date: 20070112
  Receipt Date: 20070105
  Transmission Date: 20070707
  Serious: Yes (Hospitalization, Other)
  Sender: FDA-Public Use
  Company Number: BE-RB-004682-07

PATIENT
  Sex: Male
  Weight: 60.9 kg

DRUGS (7)
  1. BUPRENEX [Suspect]
     Route: 062
     Dates: start: 20050510, end: 20050524
  2. TRAMADOL HCL [Concomitant]
  3. ALIZAPRIDE [Concomitant]
  4. ACETAMINOPHEN [Concomitant]
  5. TRAMADOL HCL [Concomitant]
  6. SUNITINIB MALATE [Suspect]
     Dates: start: 20040510, end: 20040510
  7. LEVOFLOXACIN [Concomitant]

REACTIONS (7)
  - ABDOMINAL PAIN [None]
  - DIARRHOEA [None]
  - DYSURIA [None]
  - GASTROENTERITIS [None]
  - MYALGIA [None]
  - PYREXIA [None]
  - VOMITING [None]
